FAERS Safety Report 6839595-7 (Version None)
Quarter: 2010Q3

REPORT INFORMATION
  Report Type: 
  Country: None (occurrence: None)
  Receive Date: 20100714
  Receipt Date: 20100512
  Transmission Date: 20110219
  Serious: No
  Sender: FDA-Public Use
  Company Number: A0859389A

PATIENT
  Age: 66 Year
  Sex: Male

DRUGS (3)
  1. FLOVENT [Suspect]
     Dosage: 1PUFF TWICE PER DAY
     Route: 055
     Dates: start: 20000101
  2. AMLODIPINE [Concomitant]
  3. KLOR-CON [Concomitant]

REACTIONS (1)
  - DRY MOUTH [None]
